FAERS Safety Report 25650640 (Version 2)
Quarter: 2025Q3

REPORT INFORMATION
  Report Type: Spontaneous
  Country: US (occurrence: US)
  Receive Date: 20250806
  Receipt Date: 20250814
  Transmission Date: 20251021
  Serious: No
  Sender: SANOFI AVENTIS
  Company Number: US-SA-2025SA227120

PATIENT
  Sex: Male
  Weight: 85.5 kg

DRUGS (1)
  1. DUPIXENT [Suspect]
     Active Substance: DUPILUMAB
     Indication: Nasal polyps
     Dosage: 300 MG, QOW
     Route: 058
     Dates: end: 2025

REACTIONS (3)
  - Chest pain [Not Recovered/Not Resolved]
  - Arthralgia [Unknown]
  - Joint stiffness [Unknown]
